FAERS Safety Report 16314572 (Version 2)
Quarter: 2020Q3

REPORT INFORMATION
  Report Type: Spontaneous
  Country: AU (occurrence: AU)
  Receive Date: 20190515
  Receipt Date: 20200808
  Transmission Date: 20201102
  Serious: Yes (Other)
  Sender: FDA-Public Use
  Company Number: AU-009507513-1905AUS001428

PATIENT
  Sex: Female

DRUGS (1)
  1. IMPLANON [Suspect]
     Active Substance: ETONOGESTREL
     Indication: CONTRACEPTION
     Dosage: 1 IMPLANT, UNK
     Route: 059

REACTIONS (6)
  - Sluggishness [Unknown]
  - Fatigue [Unknown]
  - Feeling abnormal [Unknown]
  - Amenorrhoea [Unknown]
  - Haemochromatosis [Recovering/Resolving]
  - Syncope [Recovered/Resolved]
